FAERS Safety Report 11881681 (Version 1)
Quarter: 2015Q4

REPORT INFORMATION
  Report Type: Spontaneous
  Country: US (occurrence: US)
  Receive Date: 20151231
  Receipt Date: 20151231
  Transmission Date: 20160305
  Serious: No
  Sender: FDA-Public Use
  Company Number: US-BAYER-2015-498808

PATIENT
  Age: 72 Year
  Sex: Male
  Weight: 124.72 kg

DRUGS (3)
  1. VITAMIN D [Concomitant]
     Active Substance: CHOLECALCIFEROL
  2. MIRALAX [Suspect]
     Active Substance: POLYETHYLENE GLYCOL 3350
     Indication: CONSTIPATION
     Dosage: 1 DF, 2-3 TIMES
     Route: 048
  3. TESTOSTERONE. [Concomitant]
     Active Substance: TESTOSTERONE

REACTIONS (1)
  - Product use issue [None]
